FAERS Safety Report 5143800-5 (Version None)
Quarter: 2006Q4

REPORT INFORMATION
  Report Type: 
  Country: None (occurrence: None)
  Receive Date: 20061030
  Receipt Date: 20061017
  Transmission Date: 20070319
  Serious: Yes (Other)
  Sender: FDA-Public Use
  Company Number: 2006127332

PATIENT
  Age: 38 Year
  Sex: Male

DRUGS (1)
  1. LYRICA [Suspect]
     Indication: PHOBIA
     Dosage: 75 MG (1 D), ORAL
     Route: 048

REACTIONS (3)
  - CARDIAC DISORDER [None]
  - DIZZINESS [None]
  - SWOLLEN TONGUE [None]
